FAERS Safety Report 5698125-6 (Version None)
Quarter: 2008Q2

REPORT INFORMATION
  Report Type: 
  Country: None (occurrence: None)
  Receive Date: 20080403
  Receipt Date: 20080320
  Transmission Date: 20081010
  Serious: Yes (Death, Life-Threatening)
  Sender: FDA-Public Use
  Company Number: 000333

PATIENT
  Age: 59 Year
  Sex: Male

DRUGS (1)
  1. BUSULFEX [Suspect]
     Indication: STEM CELL TRANSPLANT
     Dosage: 30.8 ML,  INTRAVENOUS
     Route: 042
     Dates: start: 20070115, end: 20070118

REACTIONS (29)
  - ANOREXIA [None]
  - BLOOD PRESSURE DECREASED [None]
  - CAPILLARY LEAK SYNDROME [None]
  - CARDIAC ARREST [None]
  - CONDITION AGGRAVATED [None]
  - DISEASE PROGRESSION [None]
  - DISSEMINATED INTRAVASCULAR COAGULATION [None]
  - DRUG HYPERSENSITIVITY [None]
  - DRUG TOXICITY [None]
  - FLUID RETENTION [None]
  - GASTROENTERITIS STAPHYLOCOCCAL [None]
  - GASTROINTESTINAL HAEMORRHAGE [None]
  - GENERALISED OEDEMA [None]
  - GLOSSOPTOSIS [None]
  - HAEMOLYSIS [None]
  - HAEMOLYTIC TRANSFUSION REACTION [None]
  - HAEMORRHOIDS [None]
  - HEART RATE DECREASED [None]
  - LIVER DISORDER [None]
  - MALAISE [None]
  - MULTI-ORGAN FAILURE [None]
  - PULMONARY CONGESTION [None]
  - PULMONARY MICROEMBOLI [None]
  - PULMONARY OEDEMA [None]
  - REFRACTORINESS TO PLATELET TRANSFUSION [None]
  - RENAL DISORDER [None]
  - RENAL FAILURE [None]
  - STAPHYLOCOCCAL SEPSIS [None]
  - STOMATITIS [None]
